FAERS Safety Report 21831969 (Version 1)
Quarter: 2023Q1

REPORT INFORMATION
  Report Type: Report from Study
  Country: ES (occurrence: ES)
  Receive Date: 20230106
  Receipt Date: 20230106
  Transmission Date: 20230418
  Serious: Yes (Other)
  Sender: FDA-Public Use
  Company Number: ES-JNJFOC-20221263201

PATIENT

DRUGS (3)
  1. PALIPERIDONE PALMITATE [Suspect]
     Active Substance: PALIPERIDONE PALMITATE
     Indication: Schizophrenia
     Route: 030
  2. PALIPERIDONE PALMITATE [Suspect]
     Active Substance: PALIPERIDONE PALMITATE
  3. PALIPERIDONE PALMITATE [Suspect]
     Active Substance: PALIPERIDONE PALMITATE

REACTIONS (11)
  - Hyperprolactinaemia [Unknown]
  - Anticholinergic syndrome [Unknown]
  - Parkinsonism [Unknown]
  - Sedation [Unknown]
  - Hypotension [Unknown]
  - Hyperglycaemia [Unknown]
  - Hepatic function abnormal [Unknown]
  - Lipids abnormal [Unknown]
  - Blood test abnormal [Unknown]
  - Weight decreased [Unknown]
  - Orthostatic hypotension [Unknown]
